FAERS Safety Report 7364779-1 (Version None)
Quarter: 2011Q1

REPORT INFORMATION
  Report Type: 
  Country: None (occurrence: None)
  Receive Date: 20110311
  Receipt Date: 20110311
  Transmission Date: 20110831
  Serious: No
  Sender: FDA-Public Use
  Company Number: None

PATIENT
  Age: 70 Year
  Sex: Male
  Weight: 60.5 kg

DRUGS (2)
  1. WARFARIN SODIUM [Suspect]
     Indication: ATRIAL FIBRILLATION
     Dosage: 5 MG EVERY DAY PO
     Route: 048
     Dates: start: 20100920
  2. FLUCONAZOLE [Suspect]
     Dosage: 400 MG EVERY DAY PO
     Route: 048
     Dates: start: 20110301, end: 20110311

REACTIONS (1)
  - INTERNATIONAL NORMALISED RATIO INCREASED [None]
